FAERS Safety Report 14266652 (Version 3)
Quarter: 2018Q1

REPORT INFORMATION
  Report Type: Spontaneous
  Country: FR (occurrence: FR)
  Receive Date: 20171211
  Receipt Date: 20180116
  Transmission Date: 20180508
  Serious: Yes (Other)
  Sender: FDA-Public Use
  Company Number: FR-MERCK KGAA-2036975

PATIENT
  Age: 67 Year
  Sex: Female
  Weight: 63 kg

DRUGS (7)
  1. FLECAINE [Concomitant]
     Active Substance: FLECAINIDE
  2. LEVOTHYROXINE SODIUM. [Suspect]
     Active Substance: LEVOTHYROXINE SODIUM
     Dates: start: 20170829
  3. OGAST [Concomitant]
     Active Substance: LANSOPRAZOLE
  4. PIASCLEDINE [Concomitant]
     Active Substance: AVOCADO OIL\SOYBEAN OIL
  5. PREVISCAN (FLUINDIONE) [Concomitant]
     Active Substance: FLUINDIONE
  6. NOVOTHYROX [Suspect]
     Active Substance: LEVOTHYROXINE SODIUM
     Indication: THYROIDECTOMY
     Route: 048
     Dates: start: 20170701
  7. LEVOTHYROXINE SODIUM. [Suspect]
     Active Substance: LEVOTHYROXINE SODIUM
     Dates: start: 2017

REACTIONS (7)
  - Arthralgia [Unknown]
  - Diffuse alopecia [Unknown]
  - Weight increased [Unknown]
  - Insomnia [Unknown]
  - Blood thyroid stimulating hormone increased [Unknown]
  - Irritability [Unknown]
  - Anxiety [Unknown]

NARRATIVE: CASE EVENT DATE: 20170715
